FAERS Safety Report 25250516 (Version 1)
Quarter: 2025Q2

REPORT INFORMATION
  Report Type: Spontaneous
  Country: SE (occurrence: SE)
  Receive Date: 20250429
  Receipt Date: 20250429
  Transmission Date: 20250716
  Serious: Yes (Hospitalization)
  Sender: HILL DERMACEUTICALS, INC.
  Company Number: SE-Hill Dermaceuticals, Inc.-2175821

PATIENT
  Age: 60 Year
  Sex: Male

DRUGS (2)
  1. TOLAK [Suspect]
     Active Substance: FLUOROURACIL
     Indication: Actinic keratosis
     Dates: start: 20210323, end: 20210331
  2. INFLECTRA [Concomitant]
     Active Substance: INFLIXIMAB-DYYB
     Dates: start: 201903, end: 202212

REACTIONS (1)
  - Crohn^s disease [Recovered/Resolved]

NARRATIVE: CASE EVENT DATE: 20210323
